FAERS Safety Report 22093024 (Version 1)
Quarter: 2023Q1

REPORT INFORMATION
  Report Type: Spontaneous
  Country: US (occurrence: US)
  Receive Date: 20230314
  Receipt Date: 20230314
  Transmission Date: 20230418
  Serious: Yes (Life-Threatening, Hospitalization, Other)
  Sender: FDA-Public Use
  Company Number: None

PATIENT
  Age: 41 Year
  Sex: Female

DRUGS (4)
  1. FLUOXETINE HYDROCHLORIDE [Interacting]
     Active Substance: FLUOXETINE HYDROCHLORIDE
     Indication: Product used for unknown indication
     Dosage: UNKNOWN
     Route: 065
  2. DILTIAZEM [Interacting]
     Active Substance: DILTIAZEM
     Indication: Hypertension
     Dosage: 180 MG TWICE/D (12 HOURS); CONTROLLED DELIVERY
     Route: 065
  3. CLOZAPINE [Interacting]
     Active Substance: CLOZAPINE
     Indication: Suicidal ideation
     Dosage: 500 MG IN DIVIDED DOSES, 100 MG ORAL IN THE MORNING AND 400 MG ORAL AT BEDTIME
     Route: 048
  4. CLOZAPINE [Interacting]
     Active Substance: CLOZAPINE
     Dosage: 500 MG IN DIVIDED DOSES, 100 MG ORAL IN THE MORNING AND 400 MG ORAL AT BEDTIME
     Route: 048

REACTIONS (6)
  - Ventricular extrasystoles [None]
  - Torsade de pointes [None]
  - Toxicity to various agents [None]
  - Tachycardia [None]
  - Drug interaction [None]
  - Off label use [Unknown]
